FAERS Safety Report 7648572-8 (Version None)
Quarter: 2011Q3

REPORT INFORMATION
  Report Type: 
  Country: None (occurrence: None)
  Receive Date: 20110801
  Receipt Date: 20110729
  Transmission Date: 20111222
  Serious: No
  Sender: FDA-Public Use
  Company Number: US-PFIZER INC-2011173634

PATIENT
  Sex: Female
  Weight: 68.027 kg

DRUGS (2)
  1. PRISTIQ [Suspect]
     Indication: DEPRESSION
     Dosage: 100 MG, 1X/DAY
     Route: 048
     Dates: start: 20080101
  2. PRISTIQ [Suspect]
     Indication: ANXIETY

REACTIONS (1)
  - DRUG INEFFECTIVE [None]
